FAERS Safety Report 7323971-2 (Version None)
Quarter: 2011Q1

REPORT INFORMATION
  Report Type: 
  Country: None (occurrence: None)
  Receive Date: 20110301
  Receipt Date: 20110223
  Transmission Date: 20110831
  Serious: Yes (Other)
  Sender: FDA-Public Use
  Company Number: B0702781A

PATIENT
  Sex: Female

DRUGS (1)
  1. ZINAT [Suspect]
     Dosage: 250MG TWICE PER DAY
     Route: 048
     Dates: start: 20110101, end: 20110101

REACTIONS (1)
  - ACUTE GENERALISED EXANTHEMATOUS PUSTULOSIS [None]
